FAERS Safety Report 9678226 (Version 1)
Quarter: 2013Q4

REPORT INFORMATION
  Report Type: Spontaneous
  Country: US (occurrence: None)
  Receive Date: 20131106
  Receipt Date: 20131106
  Transmission Date: 20140711
  Serious: No
  Sender: FDA-Public Use
  Company Number: NXG-13-014

PATIENT
  Sex: Female

DRUGS (1)
  1. FIORICET [Suspect]
     Indication: HEADACHE

REACTIONS (3)
  - Abdominal discomfort [None]
  - Nausea [None]
  - Pruritus [None]
